FAERS Safety Report 5826736-3 (Version None)
Quarter: 2008Q3

REPORT INFORMATION
  Report Type: 
  Country: None (occurrence: None)
  Receive Date: 20080725
  Receipt Date: 20080711
  Transmission Date: 20090109
  Serious: Yes (Death)
  Sender: FDA-Public Use
  Company Number: 031121

PATIENT
  Sex: Female

DRUGS (3)
  1. MEDROXYPROGESTERONE ACETATE(MEDROXYPROGESTRONE ACETATE) TABLET [Suspect]
     Dosage: ORAL
     Route: 048
     Dates: start: 19960101, end: 19960101
  2. PREMARIN [Suspect]
     Dosage: ORAL
     Route: 048
     Dates: start: 19940101, end: 19960101
  3. PROVERA [Suspect]
     Dosage: ORAL
     Route: 048
     Dates: start: 19940101, end: 19950101

REACTIONS (1)
  - BREAST CANCER FEMALE [None]
